FAERS Safety Report 8478356 (Version 2)
Quarter: 2012Q4

REPORT INFORMATION
  Report Type: 
  Country: US (occurrence: US)
  Receive Date: 20120327
  Receipt Date: 20121011
  Transmission Date: 20130627
  Serious: No
  Sender: FDA-Public Use
  Company Number: US-PFIZER INC-2012073787

PATIENT

DRUGS (2)
  1. XALATAN [Suspect]
     Dosage: UNK
  2. LATANOPROST [Suspect]
     Dosage: UNK

REACTIONS (2)
  - Lacrimation increased [Unknown]
  - Ocular hyperaemia [Unknown]
